FAERS Safety Report 5688322-8 (Version None)
Quarter: 2008Q1

REPORT INFORMATION
  Report Type: 
  Country: None (occurrence: None)
  Receive Date: 20080328
  Receipt Date: 20080328
  Transmission Date: 20080703
  Serious: Yes (Life-Threatening)
  Sender: FDA-Public Use
  Company Number: None

PATIENT
  Sex: Female
  Weight: 63.4 kg

DRUGS (3)
  1. BONIVA [Suspect]
     Indication: BACK PAIN
     Dosage: 6 MG ONCE A MONTH IVPB
     Route: 042
     Dates: start: 20080320
  2. BONIVA [Suspect]
     Indication: BLOOD CALCIUM INCREASED
     Dosage: 6 MG ONCE A MONTH IVPB
     Route: 042
     Dates: start: 20080320
  3. BONIVA [Suspect]
     Dosage: 6 MG ONCE A MONTH IVPB
     Route: 042
     Dates: start: 20080308

REACTIONS (4)
  - ACUTE MYOCARDIAL INFARCTION [None]
  - CARDIAC FAILURE CONGESTIVE [None]
  - PULMONARY OEDEMA [None]
  - RESPIRATORY FAILURE [None]
